FAERS Safety Report 14355763 (Version 10)
Quarter: 2018Q4

REPORT INFORMATION
  Report Type: Report from Study
  Country: CA (occurrence: CA)
  Receive Date: 20180105
  Receipt Date: 20181211
  Transmission Date: 20190204
  Serious: Yes (Other)
  Sender: FDA-Public Use
  Company Number: CA-BRISTOL-MYERS SQUIBB COMPANY-BMS-2017-078352

PATIENT
  Age: 69 Year
  Sex: Female

DRUGS (2)
  1. MONUROL [Concomitant]
     Active Substance: FOSFOMYCIN TROMETHAMINE
     Indication: PRODUCT USED FOR UNKNOWN INDICATION
     Dosage: UNK
     Route: 065
  2. ABATACEPT [Suspect]
     Active Substance: ABATACEPT
     Indication: RHEUMATOID ARTHRITIS
     Dosage: 750 MG, Q4WK
     Route: 042
     Dates: start: 20100408

REACTIONS (16)
  - Bursitis [Unknown]
  - Nasal congestion [Unknown]
  - Bladder prolapse [Unknown]
  - Musculoskeletal pain [Unknown]
  - Nasopharyngitis [Unknown]
  - Cystitis noninfective [Unknown]
  - Diverticulitis [Recovered/Resolved]
  - Back pain [Unknown]
  - Abdominal pain [Unknown]
  - Arthralgia [Unknown]
  - Secretion discharge [Unknown]
  - Nasal discomfort [Unknown]
  - Throat irritation [Unknown]
  - Urinary tract infection [Unknown]
  - Lower respiratory tract infection [Unknown]
  - Cough [Unknown]

NARRATIVE: CASE EVENT DATE: 20171213
